FAERS Safety Report 6580724-0 (Version None)
Quarter: 2010Q1

REPORT INFORMATION
  Report Type: 
  Country: None (occurrence: None)
  Receive Date: 20100212
  Receipt Date: 20100201
  Transmission Date: 20100710
  Serious: Yes (Hospitalization)
  Sender: FDA-Public Use
  Company Number: IT-AMGEN-UK379104

PATIENT
  Sex: Male

DRUGS (9)
  1. NEULASTA [Suspect]
     Indication: CHEMOTHERAPY
     Route: 058
     Dates: start: 20091111
  2. PANTORC [Concomitant]
     Route: 048
  3. ZYLORIC [Concomitant]
     Route: 048
  4. FLUPHENAZINE DECANOATE [Concomitant]
     Route: 030
  5. VINCRISTINE [Concomitant]
     Dates: start: 20090723, end: 20091216
  6. ADRIBLASTINE [Concomitant]
     Dates: start: 20090723, end: 20091216
  7. ENDOXAN [Concomitant]
     Dates: start: 20090723, end: 20091216
  8. MABTHERA [Concomitant]
     Dates: start: 20090723, end: 20091216
  9. DELTACORTENE [Concomitant]
     Dates: start: 20090723, end: 20091216

REACTIONS (2)
  - DRUG INEFFECTIVE [None]
  - FEBRILE NEUTROPENIA [None]
